FAERS Safety Report 9005102 (Version 2)
Quarter: 2013Q1

REPORT INFORMATION
  Report Type: Report from Study
  Country: US (occurrence: US)
  Receive Date: 20130109
  Receipt Date: 20130327
  Transmission Date: 20140127
  Serious: No
  Sender: FDA-Public Use
  Company Number: US-VERTEX PHARMACEUTICALS INC.-2013-000373

PATIENT
  Sex: Male
  Weight: 87 kg

DRUGS (6)
  1. VX-950 (TELAPREVIR) [Suspect]
     Indication: HEPATITIS C
     Dosage: 750 MG, TID
     Route: 048
     Dates: start: 201207
  2. RIBASPHERE [Suspect]
     Indication: HEPATITIS C
     Dosage: 400 MG, BID
     Route: 048
     Dates: start: 201207
  3. PEGASYS [Suspect]
     Indication: HEPATITIS C
     Dosage: 180 ?G, QW
     Route: 058
     Dates: start: 2012
  4. METFORMIN HCL ER [Concomitant]
     Dosage: UNK, QD
  5. LISINOPRIL [Concomitant]
     Dosage: UNK, QD
  6. CVS MILK THISLE [Concomitant]
     Dosage: UNK, QD

REACTIONS (3)
  - Myalgia [Unknown]
  - Asthenia [Unknown]
  - Fatigue [Unknown]
